FAERS Safety Report 8909032 (Version 28)
Quarter: 2016Q3

REPORT INFORMATION
  Report Type: Report from Study
  Country: CA (occurrence: CA)
  Receive Date: 20121114
  Receipt Date: 20160823
  Transmission Date: 20161109
  Serious: Yes (Hospitalization, Other)
  Sender: FDA-Public Use
  Company Number: PHHY2012CA104724

PATIENT
  Age: 62 Year
  Sex: Female

DRUGS (5)
  1. SANDOSTATIN LAR DEPOT [Suspect]
     Active Substance: OCTREOTIDE ACETATE
     Indication: ACROMEGALY
     Dosage: 20 MG, QMO (EVERY 4 WEEKS)
     Route: 030
     Dates: start: 20121017
  2. SANDOSTATIN LAR DEPOT [Suspect]
     Active Substance: OCTREOTIDE ACETATE
     Dosage: 30 MG, QMO (EVERY 4 WEEKS)
     Route: 030
     Dates: start: 20140717
  3. WATER PILLS [Concomitant]
     Active Substance: UNSPECIFIED INGREDIENT
     Indication: PRODUCT USED FOR UNKNOWN INDICATION
     Route: 065
  4. SANDOSTATIN [Suspect]
     Active Substance: OCTREOTIDE ACETATE
     Indication: ACROMEGALY
     Route: 058
     Dates: start: 20120920, end: 20120920
  5. HYDROCHLOROTHIAZIDE. [Concomitant]
     Active Substance: HYDROCHLOROTHIAZIDE
     Indication: PRODUCT USED FOR UNKNOWN INDICATION
     Route: 065

REACTIONS (28)
  - Mental disorder [Unknown]
  - Dyspnoea [Recovering/Resolving]
  - Chronic obstructive pulmonary disease [Unknown]
  - Balance disorder [Unknown]
  - Asthenia [Unknown]
  - Face injury [Unknown]
  - Blood pressure increased [Unknown]
  - Weight decreased [Unknown]
  - Nasopharyngitis [Unknown]
  - Stress [Unknown]
  - Upper limb fracture [Unknown]
  - Head injury [Unknown]
  - Heart rate increased [Unknown]
  - Respiratory distress [Unknown]
  - Blood pressure decreased [Recovering/Resolving]
  - Acute psychosis [Recovered/Resolved]
  - Blood pressure systolic increased [Unknown]
  - Laziness [Unknown]
  - Fatigue [Not Recovered/Not Resolved]
  - Dizziness [Recovering/Resolving]
  - Diabetes mellitus [Unknown]
  - Nausea [Unknown]
  - Contusion [Unknown]
  - Body temperature decreased [Unknown]
  - Decreased appetite [Unknown]
  - Depression [Unknown]
  - Fall [Unknown]
  - Large intestine polyp [Unknown]

NARRATIVE: CASE EVENT DATE: 201211
